FAERS Safety Report 4291674-7 (Version None)
Quarter: 2004Q1

REPORT INFORMATION
  Report Type: 
  Country: None (occurrence: None)
  Receive Date: 20040211
  Receipt Date: 19990223
  Transmission Date: 20041129
  Serious: No
  Sender: FDA-Public Use
  Company Number: US-GLAXOSMITHKLINE-A0088005A

PATIENT
  Age: 61 Year
  Sex: Female

DRUGS (6)
  1. IMITREX [Suspect]
     Indication: MIGRAINE
     Route: 058
  2. IMITREX [Suspect]
     Dosage: 1INJ AS REQUIRED
     Route: 058
     Dates: start: 19920101
  3. LESCOL [Concomitant]
  4. AMERGE [Concomitant]
  5. MAXALT [Concomitant]
  6. VIOXX [Concomitant]

REACTIONS (2)
  - DRUG INEFFECTIVE [None]
  - PHARMACEUTICAL PRODUCT COMPLAINT [None]
